FAERS Safety Report 8818253 (Version 1)
Quarter: 2012Q4

REPORT INFORMATION
  Report Type: 
  Country: GB (occurrence: GB)
  Receive Date: 20121001
  Receipt Date: 20121001
  Transmission Date: 20130627
  Serious: Yes (Other)
  Sender: FDA-Public Use
  Company Number: GB-GLAXOSMITHKLINE-B0456390A

PATIENT
  Sex: Female
  Weight: 77.5 kg

DRUGS (8)
  1. SEROXAT [Suspect]
     Indication: ANXIETY
     Dosage: 20MG Twice per day
     Route: 048
     Dates: start: 1995
  2. SOLPADOL (SANOFI-AVENTIS) [Concomitant]
  3. LANSOPRAZOLE [Concomitant]
     Dosage: 30MG Per day
  4. LOSARTAN [Concomitant]
  5. ZOPICLONE [Concomitant]
     Dosage: 3.75MG As required
  6. CO-CODAMOL [Concomitant]
  7. SIMVASTATIN [Concomitant]
  8. BISOPROLOL [Concomitant]

REACTIONS (16)
  - Aggression [Unknown]
  - Drug dependence [Unknown]
  - Aggression [Unknown]
  - Aggression [Unknown]
  - Dyskinesia [Unknown]
  - Vomiting [Unknown]
  - Dizziness [Unknown]
  - Drug ineffective [Unknown]
  - Depressed mood [Unknown]
  - Nightmare [Unknown]
  - Anger [Unknown]
  - Withdrawal syndrome [Unknown]
  - Hostility [Unknown]
  - Emotional disorder [Unknown]
  - Social problem [Unknown]
  - Physical assault [Unknown]
